FAERS Safety Report 12530396 (Version 2)
Quarter: 2016Q3

REPORT INFORMATION
  Report Type: Spontaneous
  Country: GB (occurrence: GB)
  Receive Date: 20160706
  Receipt Date: 20160726
  Transmission Date: 20161109
  Serious: Yes (Other)
  Sender: FDA-Public Use
  Company Number: GB-FERRINGPH-2016FE02951

PATIENT

DRUGS (3)
  1. DESMOMELT [Suspect]
     Active Substance: DESMOPRESSIN
     Indication: PRODUCT USED FOR UNKNOWN INDICATION
     Dosage: 240 ?G, UNK
     Route: 065
     Dates: start: 201602, end: 20160628
  2. MOVICOL [Concomitant]
     Active Substance: POLYETHYLENE GLYCOL 3350\POTASSIUM CHLORIDE\SODIUM BICARBONATE\SODIUM CHLORIDE
     Indication: CONSTIPATION
     Dosage: UNK
     Dates: start: 201510
  3. DESMOMELT [Suspect]
     Active Substance: DESMOPRESSIN
     Dosage: 120 ?G, UNK
     Route: 065
     Dates: start: 201510

REACTIONS (4)
  - Suicidal ideation [Recovered/Resolved]
  - Emotional disorder [Recovered/Resolved]
  - Anxiety [Recovered/Resolved]
  - Skin odour abnormal [Recovered/Resolved]

NARRATIVE: CASE EVENT DATE: 201606
